FAERS Safety Report 10560273 (Version 1)
Quarter: 2014Q4

REPORT INFORMATION
  Report Type: Spontaneous
  Country: US (occurrence: None)
  Receive Date: 20141031
  Receipt Date: 20141031
  Transmission Date: 20150529
  Serious: Yes (Other)
  Sender: FDA-Public Use
  Company Number: None

PATIENT
  Age: 45 Year
  Sex: Male
  Weight: 162 kg

DRUGS (1)
  1. IRINOTECAN HCL [Suspect]
     Active Substance: IRINOTECAN HYDROCHLORIDE
     Route: 042
     Dates: start: 20140414, end: 20140512

REACTIONS (5)
  - Eructation [None]
  - Dyspepsia [None]
  - Nausea [None]
  - Headache [None]
  - Flatulence [None]

NARRATIVE: CASE EVENT DATE: 20140414
